FAERS Safety Report 7628129-5 (Version None)
Quarter: 2011Q3

REPORT INFORMATION
  Report Type: 
  Country: None (occurrence: None)
  Receive Date: 20110720
  Receipt Date: 20110720
  Transmission Date: 20111222
  Serious: Yes (Other)
  Sender: FDA-Public Use
  Company Number: None

PATIENT
  Age: 77 Year
  Sex: Female

DRUGS (10)
  1. HYDROCODONE BITARTRATE AND ACETAMINOPHEN [Concomitant]
  2. DILTIAZEM [Concomitant]
  3. DOCUSATE [Concomitant]
  4. REVLIMID [Suspect]
     Indication: MULTIPLE MYELOMA
     Dosage: 10MG DAILY X21D/28D ORALLY
     Route: 048
     Dates: start: 20100101, end: 20100701
  5. REVLIMID [Suspect]
     Indication: MULTIPLE MYELOMA
     Dosage: 10MG DAILY X21D/28D ORALLY
     Route: 048
     Dates: start: 20101101, end: 20110301
  6. ONDANSETRON [Concomitant]
  7. ASPIRIN [Concomitant]
  8. LOSARTAN POTASSIUM [Concomitant]
  9. FUROSEMIDE [Concomitant]
  10. FAMOTIDINE [Concomitant]

REACTIONS (8)
  - ASTHENIA [None]
  - NEOPLASM PROGRESSION [None]
  - HEADACHE [None]
  - ABDOMINAL DISTENSION [None]
  - BODY TEMPERATURE INCREASED [None]
  - MULTIPLE MYELOMA [None]
  - NEUROPATHY PERIPHERAL [None]
  - CONSTIPATION [None]
